FAERS Safety Report 6435807-2 (Version None)
Quarter: 2009Q4

REPORT INFORMATION
  Report Type: 
  Country: None (occurrence: None)
  Receive Date: 20091111
  Receipt Date: 20091105
  Transmission Date: 20100525
  Serious: Yes (Death)
  Sender: FDA-Public Use
  Company Number: GB-BRISTOL-MYERS SQUIBB COMPANY-14845127

PATIENT
  Age: 5 Month

DRUGS (5)
  1. CYCLOPHOSPHAMIDE [Suspect]
  2. ETOPOSIDE [Suspect]
     Route: 042
  3. BUSULFAN [Suspect]
  4. CAMPATH [Suspect]
     Dosage: 1G
  5. ALEFACEPT [Suspect]

REACTIONS (2)
  - INFECTION [None]
  - VENOOCCLUSIVE DISEASE [None]
